FAERS Safety Report 7214514-2 (Version None)
Quarter: 2010Q4

REPORT INFORMATION
  Report Type: 
  Country: None (occurrence: None)
  Receive Date: 20101126
  Receipt Date: 20100226
  Transmission Date: 20110411
  Serious: Yes (Other)
  Sender: FDA-Public Use
  Company Number: WAES 0903USA00611

PATIENT
  Age: 66 Year
  Sex: Female
  Weight: 62.5964 kg

DRUGS (5)
  1. FOSAMAX [Suspect]
     Indication: OSTEOPOROSIS
     Dosage: 70 MG/WKY/PO
     Route: 048
     Dates: start: 20020128, end: 20080801
  2. ATENOLOL [Concomitant]
  3. BEXTRA [Concomitant]
  4. HYZAAR [Concomitant]
  5. CALCIUM (UNSPECIFED) (+) VITAMI [Concomitant]

REACTIONS (64)
  - ABSCESS [None]
  - ACUTE SINUSITIS [None]
  - ANXIETY [None]
  - ARTERIOSCLEROSIS [None]
  - ARTHRALGIA [None]
  - ARTHROPATHY [None]
  - ASTHMA [None]
  - BACK PAIN [None]
  - BLOOD TRIGLYCERIDES INCREASED [None]
  - BONE PAIN [None]
  - BREATH ODOUR [None]
  - CHEST PAIN [None]
  - COLONIC POLYP [None]
  - COMPULSIVE LIP BITING [None]
  - CONSTIPATION [None]
  - DIARRHOEA [None]
  - DIZZINESS [None]
  - EXTRAPYRAMIDAL DISORDER [None]
  - FATIGUE [None]
  - GINGIVAL BLEEDING [None]
  - GINGIVAL SWELLING [None]
  - GLUCOSE TOLERANCE IMPAIRED [None]
  - HAEMATOCHEZIA [None]
  - HAEMATURIA [None]
  - HAEMORRHOIDS [None]
  - HEADACHE [None]
  - HYPERLIPIDAEMIA [None]
  - INJECTION SITE HAEMATOMA [None]
  - INSOMNIA [None]
  - KNEE OPERATION [None]
  - LACERATION [None]
  - LOOSE TOOTH [None]
  - MALAISE [None]
  - MENOPAUSAL SYMPTOMS [None]
  - METABOLIC SYNDROME [None]
  - MUSCLE SPASMS [None]
  - MUSCULOSKELETAL STIFFNESS [None]
  - OEDEMA MOUTH [None]
  - OSTEONECROSIS [None]
  - PAIN [None]
  - PALPITATIONS [None]
  - PANIC ATTACK [None]
  - PELVIC PAIN [None]
  - PERIODONTAL DISEASE [None]
  - POOR PERSONAL HYGIENE [None]
  - POSTMENOPAUSAL HAEMORRHAGE [None]
  - PURULENT DISCHARGE [None]
  - RASH [None]
  - RECTAL HAEMORRHAGE [None]
  - RESECTION OF RECTUM [None]
  - RESORPTION BONE INCREASED [None]
  - RHINITIS ALLERGIC [None]
  - ROAD TRAFFIC ACCIDENT [None]
  - SCIATICA [None]
  - SCOLIOSIS [None]
  - STOMATITIS [None]
  - THROMBOANGIITIS OBLITERANS [None]
  - TOOTH ABSCESS [None]
  - TOOTH DISORDER [None]
  - URINARY TRACT INFECTION [None]
  - UTERINE LEIOMYOMA [None]
  - VAGINAL DISCHARGE [None]
  - VAGINAL HAEMORRHAGE [None]
  - WEIGHT DECREASED [None]
